FAERS Safety Report 5032260-0 (Version None)
Quarter: 2006Q2

REPORT INFORMATION
  Report Type: 
  Country: None (occurrence: None)
  Receive Date: 20060619
  Receipt Date: 20060608
  Transmission Date: 20061013
  Serious: Yes (Congenital Anomaly, Other)
  Sender: FDA-Public Use
  Company Number: 142903USA

PATIENT
  Age: 0 Day
  Sex: 0

DRUGS (2)
  1. COPAXONE [Suspect]
     Indication: MULTIPLE SCLEROSIS
     Dates: start: 20040902, end: 20050709
  2. LAMICTAL [Concomitant]

REACTIONS (3)
  - DRUG EXPOSURE BEFORE PREGNANCY [None]
  - STILLBIRTH [None]
  - TRISOMY 18 [None]
